FAERS Safety Report 5199160-7 (Version None)
Quarter: 2006Q4

REPORT INFORMATION
  Report Type: 
  Country: None (occurrence: None)
  Receive Date: 20060919
  Receipt Date: 20060616
  Transmission Date: 20070319
  Serious: No
  Sender: FDA-Public Use
  Company Number: 2006US000149

PATIENT
  Age: 87 Year
  Sex: Female

DRUGS (8)
  1. VESICARE [Suspect]
     Indication: POLLAKIURIA
     Dosage: 5 MG, ORAL
     Route: 048
     Dates: start: 20050101, end: 20060611
  2. NEXIUM [Concomitant]
  3. TOPROL-XL [Concomitant]
  4. ARIMIDEX [Concomitant]
  5. EFFEXOR [Concomitant]
  6. ARICEPT [Concomitant]
  7. LOTREL [Concomitant]
  8. LIPITOR [Concomitant]

REACTIONS (2)
  - DRUG INEFFECTIVE [None]
  - NOCTURIA [None]
